FAERS Safety Report 18559985 (Version 8)
Quarter: 2022Q2

REPORT INFORMATION
  Report Type: Spontaneous
  Country: SI (occurrence: SI)
  Receive Date: 20201130
  Receipt Date: 20220624
  Transmission Date: 20220721
  Serious: Yes (Hospitalization, Other)
  Sender: FDA-Public Use
  Company Number: None

PATIENT
  Age: 83 Year
  Sex: Male

DRUGS (31)
  1. VANCOMYCIN [Suspect]
     Active Substance: VANCOMYCIN
     Indication: Product used for unknown indication
     Dosage: 1 GRAM
     Route: 042
  2. VANCOMYCIN [Suspect]
     Active Substance: VANCOMYCIN
     Dosage: 1 GRAM
     Route: 042
  3. ZOLPIDEM [Suspect]
     Active Substance: ZOLPIDEM TARTRATE
     Indication: Product used for unknown indication
     Dosage: 5 MILLIGRAM, QD (IN THE EVENING)
     Route: 065
  4. PANTOPRAZOLE [Suspect]
     Active Substance: PANTOPRAZOLE
     Indication: Product used for unknown indication
     Dosage: 20 MILLIGRAM
     Route: 065
  5. DARBEPOETIN ALFA [Suspect]
     Active Substance: DARBEPOETIN ALFA
     Indication: Product used for unknown indication
     Dosage: 250 MICROGRAM, UNK, QOW; (100 + 150 MCG EVERY 14 DAY)
     Route: 065
  6. ACETAMINOPHEN [Suspect]
     Active Substance: ACETAMINOPHEN
     Indication: Product used for unknown indication
     Dosage: 500 MG, AS NEEDED
     Route: 065
  7. DARBEPOETIN ALFA [Suspect]
     Active Substance: DARBEPOETIN ALFA
     Indication: Product used for unknown indication
     Dosage: 250 MICROGRAM, UNK QOW;(100 + 150 MCG EVERY 14 DAY, 250 UG, QOW)
     Route: 065
  8. FERRIC HYDROXIDE [Suspect]
     Active Substance: FERRIC HYDROXIDE
     Indication: Product used for unknown indication
     Dosage: 12 DOSAGE FORM, QD(4 DF, TID(3 X 4 TBL WITH FOOD) )
     Route: 065
  9. CHOLECALCIFEROL [Suspect]
     Active Substance: CHOLECALCIFEROL
     Indication: Product used for unknown indication
     Dosage: 1 DF, QM; QMO
     Route: 065
  10. BISOPROLOL [Suspect]
     Active Substance: BISOPROLOL
     Indication: Product used for unknown indication
     Dosage: 2.5 MG (IN THE MORNING)
     Route: 065
  11. CEFTRIAXONE [Suspect]
     Active Substance: CEFTRIAXONE
     Indication: Product used for unknown indication
     Dosage: 2 GRAM, QD (2 G (FOR 24 HOURS))
     Route: 042
  12. ALFACALCIDOL [Suspect]
     Active Substance: ALFACALCIDOL
     Indication: Product used for unknown indication
     Dosage: 0.5 MICROGRAM
     Route: 065
  13. LACIDIPINE [Suspect]
     Active Substance: LACIDIPINE
     Indication: Product used for unknown indication
     Dosage: 4 MILLIGRAM
     Route: 065
  14. ZOLPIDEM TARTRATE [Suspect]
     Active Substance: ZOLPIDEM TARTRATE
     Indication: Product used for unknown indication
     Dosage: 5 MG (IN THE EVENING)
     Route: 065
  15. FOLIC ACID [Suspect]
     Active Substance: FOLIC ACID
     Indication: Product used for unknown indication
     Dosage: UNK (2 X 1 TBL)
     Route: 065
  16. FOLIC ACID [Suspect]
     Active Substance: FOLIC ACID
     Dosage: 2 DOSAGE FORM, QD (1 DF, BID; (2 X 1 TBL) )
     Route: 065
  17. PANTOPRAZOLE SODIUM [Suspect]
     Active Substance: PANTOPRAZOLE SODIUM
     Indication: Product used for unknown indication
     Dosage: 20 MILLIGRAM
     Route: 065
  18. WARFARIN SODIUM [Suspect]
     Active Substance: WARFARIN SODIUM
     Indication: Product used for unknown indication
     Dosage: UNK (ACCORDING TO THE SCHEME)
     Route: 065
  19. CHOLECALCIFEROL [Suspect]
     Active Substance: CHOLECALCIFEROL
     Indication: Product used for unknown indication
     Dosage: 1 DOSAGE FORM, MONTHLY (1 DF, QM; QMO;  )
     Route: 065
  20. SEVELAMER [Suspect]
     Active Substance: SEVELAMER
     Indication: Product used for unknown indication
     Dosage: UNK
     Route: 065
  21. BISOPROLOL FUMARATE [Suspect]
     Active Substance: BISOPROLOL FUMARATE
     Indication: Product used for unknown indication
     Dosage: 2.5 MILLIGRAM, AM (2.5 MG (IN THE MORNING))
     Route: 065
  22. FOLIC ACID [Suspect]
     Active Substance: FOLIC ACID
     Indication: Product used for unknown indication
     Dosage: 1 DOSAGE FORM, BID (2 X 1 TBL)
     Route: 065
  23. FOLIC ACID [Suspect]
     Active Substance: FOLIC ACID
     Dosage: 2 DOSAGE FORM, BID (1 DF, BID; (2 X 1 TBL))
     Route: 065
  24. FOLIC ACID [Suspect]
     Active Substance: FOLIC ACID
     Dosage: 8 DOSAGE FORM, QD (4 DF, BID 1 DF, BID; (2 X1 TBL))
     Route: 065
  25. WARFARIN SODIUM [Suspect]
     Active Substance: WARFARIN SODIUM
     Indication: Product used for unknown indication
     Dosage: UNK ACCORDING TO THE SCHEME
     Route: 065
  26. ALFACALCIDOL [Suspect]
     Active Substance: ALFACALCIDOL
     Indication: Product used for unknown indication
     Dosage: 5 MICROGRAM
     Route: 065
  27. ALFACALCIDOL [Suspect]
     Active Substance: ALFACALCIDOL
     Dosage: 5 MICROGRAM
     Route: 065
  28. ALFACALCIDOL [Suspect]
     Active Substance: ALFACALCIDOL
     Dosage: 0.5 MICROGRAM
     Route: 065
  29. ALFACALCIDOL [Suspect]
     Active Substance: ALFACALCIDOL
     Dosage: 2.5 MICROGRAM
     Route: 065
  30. ALFACALCIDOL [Suspect]
     Active Substance: ALFACALCIDOL
     Dosage: 2.5 MILLIGRAM
     Route: 065
  31. DIGOXIN [Suspect]
     Active Substance: DIGOXIN
     Indication: Product used for unknown indication
     Dosage: UNK
     Route: 065

REACTIONS (23)
  - Tachycardia [Unknown]
  - Device related sepsis [Unknown]
  - Splenomegaly [Unknown]
  - Procalcitonin abnormal [Unknown]
  - International normalised ratio increased [Unknown]
  - Haematocrit decreased [Unknown]
  - Heart rate increased [Recovered/Resolved]
  - C-reactive protein increased [Unknown]
  - Hypotension [Recovered/Resolved]
  - Encephalomalacia [Unknown]
  - Platelet count decreased [Unknown]
  - Dysarthria [Unknown]
  - Laboratory test abnormal [Unknown]
  - Cough [Unknown]
  - Oxygen saturation decreased [Unknown]
  - PO2 decreased [Unknown]
  - White blood cell count increased [Unknown]
  - Monocyte count increased [Unknown]
  - Malaise [Unknown]
  - Dysphagia [Unknown]
  - Asthenia [Unknown]
  - Lymphocyte count increased [Unknown]
  - PCO2 decreased [Unknown]

NARRATIVE: CASE EVENT DATE: 20200907
